FAERS Safety Report 6334836-7 (Version None)
Quarter: 2009Q3

REPORT INFORMATION
  Report Type: 
  Country: None (occurrence: None)
  Receive Date: 20090831
  Receipt Date: 20090706
  Transmission Date: 20100115
  Serious: Yes (Hospitalization, Other)
  Sender: FDA-Public Use
  Company Number: PHHY2009DE32427

PATIENT
  Age: 45 Year
  Sex: Female

DRUGS (7)
  1. PANTOZOL [Suspect]
     Indication: SUICIDE ATTEMPT
     Dosage: 280 MG, ONCE/SINGLE
  2. DICLOFENAC [Suspect]
     Indication: SUICIDE ATTEMPT
  3. RAMIPRIL [Suspect]
  4. COTRIM [Suspect]
  5. IBUPROFEN [Suspect]
  6. AMOXICILLIN [Suspect]
  7. ALCOHOL [Suspect]

REACTIONS (6)
  - ACIDOSIS [None]
  - BLOOD LACTIC ACID INCREASED [None]
  - HYPOKALAEMIA [None]
  - HYPOTENSION [None]
  - INTENTIONAL OVERDOSE [None]
  - SUICIDE ATTEMPT [None]
